FAERS Safety Report 5928333-8 (Version None)
Quarter: 2008Q4

REPORT INFORMATION
  Report Type: 
  Country: None (occurrence: None)
  Receive Date: 20081023
  Receipt Date: 20081016
  Transmission Date: 20090506
  Serious: Yes (Other)
  Sender: FDA-Public Use
  Company Number: US-PFIZER INC-2008087479

PATIENT
  Sex: Female

DRUGS (1)
  1. XANAX [Suspect]

REACTIONS (2)
  - DYSPHONIA [None]
  - PNEUMONIA [None]
